FAERS Safety Report 5776780-X (Version None)
Quarter: 2008Q2

REPORT INFORMATION
  Report Type: 
  Country: None (occurrence: None)
  Receive Date: 20080618
  Receipt Date: 20080519
  Transmission Date: 20081010
  Serious: No
  Sender: FDA-Public Use
  Company Number: US-ASTRAZENECA-2008UW10261

PATIENT
  Age: 53 Year
  Sex: Male
  Weight: 77.1 kg

DRUGS (9)
  1. SYMBICORT [Suspect]
     Indication: ASTHMA
     Dosage: 160/4.5 MCG
     Route: 055
  2. SYMBICORT [Suspect]
     Indication: BRONCHITIS
     Dosage: 160/4.5 MCG
     Route: 055
  3. ADVAIR DISKUS 100/50 [Concomitant]
     Indication: ASTHMA
     Dosage: 45/21 MCG
     Route: 055
  4. ADVAIR DISKUS 100/50 [Concomitant]
     Indication: BRONCHITIS
     Dosage: 45/21 MCG
     Route: 055
  5. FLUTICASONE PROPIONATE [Concomitant]
     Route: 045
     Dates: start: 20060101
  6. COMBIVENT [Concomitant]
     Route: 055
     Dates: start: 20060101
  7. VITAMIN E [Concomitant]
     Route: 030
  8. VITAMIN E [Concomitant]
     Route: 048
  9. VITAMIN D [Concomitant]

REACTIONS (1)
  - PULMONARY CONGESTION [None]
